FAERS Safety Report 19108949 (Version 1)
Quarter: 2021Q2

REPORT INFORMATION
  Report Type: Spontaneous
  Country: ES (occurrence: ES)
  Receive Date: 20210409
  Receipt Date: 20210409
  Transmission Date: 20210717
  Serious: Yes (Hospitalization)
  Sender: FDA-Public Use
  Company Number: ES-SUN PHARMACEUTICAL INDUSTRIES LTD-2021RR-290470

PATIENT
  Age: 83 Year
  Sex: Male

DRUGS (12)
  1. CLOPIDOGREL [Suspect]
     Active Substance: CLOPIDOGREL BISULFATE
     Indication: AORTIC VALVE REPLACEMENT
     Dosage: 75 MG C/24H
     Route: 048
     Dates: start: 20210111, end: 20210205
  2. AMLODIPINO 5 MG [Concomitant]
     Indication: PRODUCT USED FOR UNKNOWN INDICATION
     Dosage: 5 MG CADA 24 HORAS ()
     Route: 048
     Dates: start: 20210212
  3. ATORVASTATINA/EZETIMIBA 80/10 MG [Concomitant]
     Indication: PRODUCT USED FOR UNKNOWN INDICATION
     Dosage: 1 COMPRIMIDO AL D?A ()
     Route: 048
     Dates: start: 20210118
  4. ABASAGLAR 100 UNIDADES/ML KWIKPEN SOLUCION INYECTABLE EN PLUMA PREC... [Concomitant]
     Indication: DIABETES MELLITUS
     Dosage: 34 UI C/24H ()
     Route: 058
     Dates: start: 20180529
  5. TRANKIMAZIN 0,50 MG COMPRIMIDOS , 30 COMPRIMIDOS [Concomitant]
     Active Substance: ALPRAZOLAM
     Indication: PRODUCT USED FOR UNKNOWN INDICATION
     Dosage: 0.5 MG 1 VEZ AL D?A ()
     Route: 048
     Dates: start: 20130514, end: 20210309
  6. ACIDO ACETILSALICILICO 100 MG [Concomitant]
     Indication: PRODUCT USED FOR UNKNOWN INDICATION
     Dosage: 100 MG C/24H ()
     Route: 048
     Dates: start: 20180119, end: 20210205
  7. ALOPURINOL 100 MG [Concomitant]
     Active Substance: ALLOPURINOL
     Indication: PRODUCT USED FOR UNKNOWN INDICATION
     Dosage: 100 MG C/24H ()
     Route: 048
     Dates: start: 20200331
  8. APIXABAN 2,5 MG [Concomitant]
     Indication: PRODUCT USED FOR UNKNOWN INDICATION
     Dosage: 2.5 MG C/12H ()
     Route: 048
     Dates: start: 20210118
  9. FUROSEMIDA 40 MG [Concomitant]
     Active Substance: FUROSEMIDE
     Indication: PRODUCT USED FOR UNKNOWN INDICATION
     Dosage: 40 MG C/24H ()
     Route: 048
     Dates: start: 20210107
  10. LINAGLIPTINA 5 MG [Concomitant]
     Indication: DIABETES MELLITUS
     Dosage: 5 MG C/24 HORAS ()
     Route: 048
     Dates: start: 20160721
  11. REPAGLINIDA 1 MG [Concomitant]
     Indication: DIABETES MELLITUS
     Dosage: 1 MG C/8H ()
     Route: 048
     Dates: start: 20160721, end: 20210225
  12. PANTOPRAZOLE SODIUM. [Concomitant]
     Active Substance: PANTOPRAZOLE SODIUM
     Indication: PRODUCT USED FOR UNKNOWN INDICATION
     Dosage: 40 MG C/24H ()
     Route: 048
     Dates: start: 20210118

REACTIONS (1)
  - Eosinophilic pneumonia [Recovering/Resolving]

NARRATIVE: CASE EVENT DATE: 20210124
